FAERS Safety Report 10244844 (Version 2)
Quarter: 2014Q3

REPORT INFORMATION
  Report Type: Report from Study
  Country: US (occurrence: US)
  Receive Date: 20140618
  Receipt Date: 20140828
  Transmission Date: 20150326
  Serious: Yes (Death, Other)
  Sender: FDA-Public Use
  Company Number: US-BAXTER-2014BAX030661

PATIENT
  Age: 65 Year

DRUGS (4)
  1. CYTOXAN [Suspect]
     Active Substance: CYCLOPHOSPHAMIDE
     Indication: PLASMA CELL MYELOMA
     Dosage: DAYS: 1-4
     Route: 042
     Dates: start: 20121228, end: 20121231
  2. MESNA FOR INJECTION - 3 GRAM [Suspect]
     Active Substance: MESNA
     Indication: PLASMA CELL MYELOMA
     Route: 042
     Dates: start: 20121228, end: 20121231
  3. ADRIAMYCIN [Suspect]
     Active Substance: DOXORUBICIN HYDROCHLORIDE
     Indication: PLASMA CELL MYELOMA
     Dosage: DAYS: 1-4
     Route: 042
     Dates: start: 20121228, end: 20121231
  4. DEXAMETHASONE. [Suspect]
     Active Substance: DEXAMETHASONE
     Indication: PLASMA CELL MYELOMA
     Dosage: DAYS: 1-4, 9-12 AND 17-20
     Route: 048
     Dates: start: 20121228, end: 20130116

REACTIONS (4)
  - Death [Fatal]
  - Renal failure acute [Unknown]
  - Plasma cell leukaemia [Unknown]
  - Leukaemia recurrent [Unknown]

NARRATIVE: CASE EVENT DATE: 20121228
